FAERS Safety Report 8356073-7 (Version None)
Quarter: 2012Q2

REPORT INFORMATION
  Report Type: 
  Country: None (occurrence: None)
  Receive Date: 20120514
  Receipt Date: 20120430
  Transmission Date: 20120825
  Serious: Yes (Hospitalization, Other)
  Sender: FDA-Public Use
  Company Number: US-MYLANLABS-2009AC000183

PATIENT
  Sex: Male
  Weight: 67.13 kg

DRUGS (60)
  1. OMEPRAZOLE [Concomitant]
  2. DIAZEPAM [Concomitant]
  3. LISINOPRIL [Concomitant]
  4. MEDROL [Concomitant]
  5. XANAX [Concomitant]
  6. DARVOCET [Concomitant]
  7. CELEBREX [Concomitant]
  8. DUONEB [Concomitant]
  9. ALBUTEROL [Concomitant]
  10. COMBIVENT [Concomitant]
  11. KEFLEX [Concomitant]
  12. GUAIFENESIN [Concomitant]
  13. COUMADIN [Concomitant]
  14. TYLENOL (CAPLET) [Concomitant]
  15. CLAVINEX /01000301/ [Concomitant]
  16. SPIRIVA [Concomitant]
  17. PLAVIX [Concomitant]
  18. PRILOSEC [Concomitant]
  19. PULMICORT [Concomitant]
  20. PREDNISONE TAB [Concomitant]
  21. LEVAQUIN [Concomitant]
  22. CIPROFLOXACIN [Concomitant]
  23. NAPROSYN [Concomitant]
  24. ATARAX [Concomitant]
  25. NSAID'S [Concomitant]
  26. LODINE [Concomitant]
  27. NASONEX [Concomitant]
  28. NEXIUM [Concomitant]
  29. SOLU-MEDROL [Concomitant]
  30. DAYPRO [Concomitant]
  31. CLARITIN /00413701/ [Concomitant]
  32. GUAIFENESIN [Concomitant]
  33. DOXYCYCLINE [Concomitant]
  34. PROAIR HFA [Concomitant]
  35. SINGULAIR [Concomitant]
  36. ZITHROMAX [Concomitant]
  37. OXYGEN [Concomitant]
  38. MUCINEX [Concomitant]
  39. ATROVENT [Concomitant]
  40. DIGOXIN [Suspect]
     Route: 048
     Dates: start: 20001209, end: 20090826
  41. ASPIRIN [Concomitant]
  42. AZITHROMYCIN [Concomitant]
  43. MUCINEX [Concomitant]
  44. SOTALOL HCL [Concomitant]
  45. PROVENTIL [Concomitant]
  46. KENALOG [Concomitant]
  47. LAMISIL [Concomitant]
  48. COMBIVENT [Concomitant]
  49. CAPTOPRIL [Concomitant]
  50. FLOMAX [Concomitant]
  51. NASONEX [Concomitant]
  52. ADVAIR DISKUS 100/50 [Concomitant]
  53. KEFLEX [Concomitant]
  54. METOPROLOL TARTRATE [Concomitant]
  55. FUROSEMIDE [Concomitant]
  56. ROCEPHIN [Concomitant]
  57. VOLTAREN EMUGEL [Concomitant]
  58. TESSALON [Concomitant]
  59. INFLUENZA VACCINE [Concomitant]
  60. VENTOLIN [Concomitant]

REACTIONS (121)
  - ILL-DEFINED DISORDER [None]
  - CHEST PAIN [None]
  - CORONARY ARTERY DISEASE [None]
  - PLEURAL EFFUSION [None]
  - CONDITION AGGRAVATED [None]
  - ELECTROCARDIOGRAM ABNORMAL [None]
  - ELECTROCARDIOGRAM T WAVE ABNORMAL [None]
  - HYPERTENSION [None]
  - PRURITUS [None]
  - PYREXIA [None]
  - UROSEPSIS [None]
  - USE OF ACCESSORY RESPIRATORY MUSCLES [None]
  - WHITE BLOOD CELLS URINE POSITIVE [None]
  - CHRONIC OBSTRUCTIVE PULMONARY DISEASE [None]
  - CEREBROVASCULAR ACCIDENT [None]
  - DYSPNOEA [None]
  - CARDIAC FAILURE CONGESTIVE [None]
  - DIZZINESS [None]
  - HYPERGLYCAEMIA [None]
  - INFECTED DERMAL CYST [None]
  - PROSTATITIS [None]
  - RESPIRATORY TRACT CONGESTION [None]
  - LACERATION [None]
  - ECONOMIC PROBLEM [None]
  - SINUS CONGESTION [None]
  - BENIGN PROSTATIC HYPERPLASIA [None]
  - DISEASE PROGRESSION [None]
  - DIABETES MELLITUS [None]
  - SYNCOPE [None]
  - ARTERIOSCLEROSIS [None]
  - BLOOD URINE PRESENT [None]
  - BREATH SOUNDS ABNORMAL [None]
  - CONJUNCTIVITIS [None]
  - DERMATITIS [None]
  - FLANK PAIN [None]
  - FOCAL NODULAR HYPERPLASIA [None]
  - MUSCULOSKELETAL PAIN [None]
  - NEPHROLITHIASIS [None]
  - OEDEMA PERIPHERAL [None]
  - OROPHARYNGEAL PAIN [None]
  - PARAESTHESIA [None]
  - RHINITIS [None]
  - SINUS DISORDER [None]
  - TINEA INFECTION [None]
  - TOBACCO USER [None]
  - URINE ANALYSIS ABNORMAL [None]
  - INJURY [None]
  - URINARY RETENTION [None]
  - ARTERIOSCLEROSIS CORONARY ARTERY [None]
  - DRUG HYPERSENSITIVITY [None]
  - ELECTROCARDIOGRAM LOW VOLTAGE [None]
  - GRAVITATIONAL OEDEMA [None]
  - LUNG NEOPLASM [None]
  - MUSCULOSKELETAL CHEST PAIN [None]
  - NAIL DISORDER [None]
  - NECK PAIN [None]
  - ORTHOPNOEA [None]
  - RHINITIS ALLERGIC [None]
  - RHONCHI [None]
  - SPINAL OSTEOARTHRITIS [None]
  - SPUTUM DISCOLOURED [None]
  - URINARY INCONTINENCE [None]
  - WOUND [None]
  - LIVER FUNCTION TEST ABNORMAL [None]
  - BRONCHITIS [None]
  - POLLAKIURIA [None]
  - PRODUCTIVE COUGH [None]
  - HYPOXIA [None]
  - WHEEZING [None]
  - BLOOD GLUCOSE ABNORMAL [None]
  - CHEST EXPANSION DECREASED [None]
  - COMPUTERISED TOMOGRAM ABNORMAL [None]
  - EX-TOBACCO USER [None]
  - INFECTED CYST [None]
  - LUNG HYPERINFLATION [None]
  - NOCTURNAL DYSPNOEA [None]
  - PROLONGED EXPIRATION [None]
  - SINUS ARRHYTHMIA [None]
  - ONYCHOMYCOSIS [None]
  - TINEA PEDIS [None]
  - PAIN IN EXTREMITY [None]
  - URINARY TRACT INFECTION [None]
  - BRONCHOSPASM [None]
  - BACK PAIN [None]
  - PROSTATOMEGALY [None]
  - PULMONARY FUNCTION TEST DECREASED [None]
  - SINUS BRADYCARDIA [None]
  - SUPRAVENTRICULAR EXTRASYSTOLES [None]
  - TACHYCARDIA [None]
  - TRICUSPID VALVE INCOMPETENCE [None]
  - URINE KETONE BODY PRESENT [None]
  - COUGH [None]
  - ASTHMA [None]
  - CYSTITIS [None]
  - DRUG EFFECT PROLONGED [None]
  - DRUG INEFFECTIVE [None]
  - EMPHYSEMA [None]
  - GASTROOESOPHAGEAL REFLUX DISEASE [None]
  - HEART RATE IRREGULAR [None]
  - HEPATIC LESION [None]
  - HILAR LYMPHADENOPATHY [None]
  - HYPOAESTHESIA [None]
  - NASAL CONGESTION [None]
  - NITRITE URINE PRESENT [None]
  - RADICULOPATHY [None]
  - SKIN LESION [None]
  - UPPER RESPIRATORY TRACT INFECTION [None]
  - PNEUMONIA KLEBSIELLA [None]
  - SEPSIS [None]
  - AORTIC CALCIFICATION [None]
  - ARTHRALGIA [None]
  - CULTURE URINE POSITIVE [None]
  - CYST [None]
  - DIASTOLIC DYSFUNCTION [None]
  - HEPATIC CYST [None]
  - INSOMNIA [None]
  - LACUNAR INFARCTION [None]
  - NERVE ROOT COMPRESSION [None]
  - PULMONARY GRANULOMA [None]
  - URINE LEUKOCYTE ESTERASE POSITIVE [None]
  - VENTRICULAR EXTRASYSTOLES [None]
